FAERS Safety Report 13691772 (Version 4)
Quarter: 2017Q3

REPORT INFORMATION
  Report Type: Report from Study
  Country: None (occurrence: HU)
  Receive Date: 20170626
  Receipt Date: 20170802
  Transmission Date: 20171127
  Serious: Yes (Death, Hospitalization, Other)
  Sender: FDA-Public Use
  Company Number: HU-ABBVIE-17P-076-2019848-00

PATIENT
  Age: 81 Year
  Sex: Female

DRUGS (8)
  1. FRONTIN [Concomitant]
     Active Substance: ALPRAZOLAM
     Indication: SLEEP DISORDER
     Route: 048
  2. BISOPROLOL-RATIOPHARM [Concomitant]
     Indication: HYPERTENSION
     Route: 048
  3. DUODOPA [Suspect]
     Active Substance: CARBIDOPA\LEVODOPA
     Indication: PARKINSON^S DISEASE
     Dosage: MORNING DOSE 11.5ML; CONTINUOUS DOSE 2.9ML/H;EXTRA DOSE 1.9ML
     Route: 050
     Dates: start: 20141015, end: 20170718
  4. PANTOPRAZOLE [Concomitant]
     Active Substance: PANTOPRAZOLE
     Indication: PROPHYLAXIS
     Route: 048
  5. VITAMIN D3 [Concomitant]
     Active Substance: CHOLECALCIFEROL
     Indication: OSTEOPOROSIS
     Route: 048
  6. LETROX [Concomitant]
     Active Substance: LEVOTHYROXINE SODIUM
     Indication: HYPOTHYROIDISM
     Route: 048
  7. ESCITIL [Concomitant]
     Indication: ANXIETY
     Route: 048
  8. MEMORIL [Concomitant]
     Indication: MEMORY IMPAIRMENT
     Route: 048

REACTIONS (8)
  - Neoplasm malignant [Fatal]
  - Intestinal mass [Not Recovered/Not Resolved]
  - Decreased appetite [Not Recovered/Not Resolved]
  - Urinary tract infection [Recovering/Resolving]
  - Condition aggravated [Unknown]
  - Pneumonia [Not Recovered/Not Resolved]
  - Iron deficiency anaemia [Recovering/Resolving]
  - Stoma site discharge [Not Recovered/Not Resolved]

NARRATIVE: CASE EVENT DATE: 201706
